FAERS Safety Report 12167215 (Version 1)
Quarter: 2016Q1

REPORT INFORMATION
  Report Type: Spontaneous
  Country: None (occurrence: None)
  Receive Date: 20160309
  Receipt Date: 20160309
  Transmission Date: 20160526
  Serious: No
  Sender: FDA-Public Use
  Company Number: None

PATIENT
  Sex: Female

DRUGS (4)
  1. LEVEMIR [Suspect]
     Active Substance: INSULIN DETEMIR
  2. HUMALOG [Suspect]
     Active Substance: INSULIN LISPRO
  3. PREDNISONE. [Suspect]
     Active Substance: PREDNISONE
  4. METFORMIN [Suspect]
     Active Substance: METFORMIN HYDROCHLORIDE

REACTIONS (8)
  - Injection site pain [None]
  - Hyperglycaemia [None]
  - Skin irritation [None]
  - Drug ineffective [None]
  - Drug hypersensitivity [None]
  - Injection site bruising [None]
  - Pneumonia [None]
  - Scar [None]
